FAERS Safety Report 4483503-3 (Version None)
Quarter: 2004Q4

REPORT INFORMATION
  Report Type: 
  Country: None (occurrence: None)
  Receive Date: 20041019
  Receipt Date: 20041019
  Transmission Date: 20050328
  Serious: Yes (Death, Hospitalization)
  Sender: FDA-Public Use
  Company Number: None

PATIENT
  Age: 80 Year
  Sex: Male
  Weight: 55.3388 kg

DRUGS (1)
  1. LOMOTIL [Suspect]
     Indication: DIARRHOEA
     Dosage: 2.5 MG AS DIRECTED ORAL
     Route: 048
     Dates: start: 20040804, end: 20040816

REACTIONS (11)
  - ABDOMINAL PAIN [None]
  - CLOSTRIDIUM COLITIS [None]
  - DIARRHOEA [None]
  - HERNIA [None]
  - HYPOTENSION [None]
  - RESPIRATORY DISORDER [None]
  - SEPTIC SHOCK [None]
  - SHOCK [None]
  - TACHYCARDIA [None]
  - TOXIC DILATATION OF COLON [None]
  - WHITE BLOOD CELL COUNT DECREASED [None]
